FAERS Safety Report 25281045 (Version 2)
Quarter: 2025Q2

REPORT INFORMATION
  Report Type: Spontaneous
  Country: US (occurrence: US)
  Receive Date: 20250508
  Receipt Date: 20250612
  Transmission Date: 20250716
  Serious: No
  Sender: GRAVITI PHARMACEUTICALS PRIVATE LIMITED
  Company Number: US-GRAVITIPHARMA-GRA-2504-US-SPO-0251

PATIENT

DRUGS (2)
  1. ATORVASTATIN CALCIUM [Suspect]
     Active Substance: ATORVASTATIN CALCIUM
     Indication: Cerebrovascular accident
     Route: 048
     Dates: start: 20250209
  2. ATORVASTATIN CALCIUM [Suspect]
     Active Substance: ATORVASTATIN CALCIUM
     Indication: Blood cholesterol decreased

REACTIONS (2)
  - Blood urine present [Not Recovered/Not Resolved]
  - Throat tightness [Not Recovered/Not Resolved]

NARRATIVE: CASE EVENT DATE: 20250411
